FAERS Safety Report 6612315-7 (Version None)
Quarter: 2010Q1

REPORT INFORMATION
  Report Type: 
  Country: None (occurrence: None)
  Receive Date: 20100302
  Receipt Date: 20100302
  Transmission Date: 20100710
  Serious: Yes (Hospitalization)
  Sender: FDA-Public Use
  Company Number: None

PATIENT
  Sex: Female
  Weight: 48.7617 kg

DRUGS (1)
  1. THALOMID [Suspect]
     Indication: MULTIPLE MYELOMA
     Dosage: 200MG DAILY PO
     Route: 048
     Dates: start: 20081113, end: 20090428

REACTIONS (5)
  - COAGULOPATHY [None]
  - FOOT AMPUTATION [None]
  - NECROSIS [None]
  - PERIPHERAL ISCHAEMIA [None]
  - THROMBOSIS [None]
